FAERS Safety Report 6553237-X (Version None)
Quarter: 2010Q1

REPORT INFORMATION
  Report Type: 
  Country: None (occurrence: None)
  Receive Date: 20100127
  Receipt Date: 20090415
  Transmission Date: 20100710
  Serious: No
  Sender: FDA-Public Use
  Company Number: A0778949A

PATIENT

DRUGS (2)
  1. IMITREX [Suspect]
     Indication: HEADACHE
     Route: 065
  2. NO CONCURRENT MEDICATION [Concomitant]

REACTIONS (2)
  - EYELID OEDEMA [None]
  - LIP SWELLING [None]
